FAERS Safety Report 17454771 (Version 1)
Quarter: 2020Q1

REPORT INFORMATION
  Report Type: Spontaneous
  Country: US (occurrence: US)
  Receive Date: 20200225
  Receipt Date: 20200225
  Transmission Date: 20200409
  Serious: No
  Sender: FDA-Public Use
  Company Number: US-APOTEX-2020AP007786

PATIENT
  Sex: Female

DRUGS (1)
  1. SOTALOL. [Suspect]
     Active Substance: SOTALOL
     Indication: PRODUCT USED FOR UNKNOWN INDICATION
     Dosage: UNK (APPROXIMATELY 2 WEEKS)
     Route: 065

REACTIONS (1)
  - Adverse drug reaction [Unknown]
